FAERS Safety Report 12621776 (Version 1)
Quarter: 2016Q3

REPORT INFORMATION
  Report Type: Spontaneous
  Country: US (occurrence: None)
  Receive Date: 20160803
  Receipt Date: 20160803
  Transmission Date: 20161109
  Serious: Yes (Hospitalization, Other)
  Sender: FDA-Public Use
  Company Number: None

PATIENT
  Age: 47 Year
  Sex: Male

DRUGS (1)
  1. HARVONI [Suspect]
     Active Substance: LEDIPASVIR\SOFOSBUVIR
     Indication: HEPATITIS C
     Dosage: 90-400MG DAILY ORAL
     Route: 048
     Dates: start: 20151020, end: 20151224

REACTIONS (5)
  - Road traffic accident [None]
  - Confusional state [None]
  - Amnesia [None]
  - Disorientation [None]
  - Legal problem [None]

NARRATIVE: CASE EVENT DATE: 20151201
